FAERS Safety Report 5890400-5 (Version None)
Quarter: 2008Q3

REPORT INFORMATION
  Report Type: 
  Country: None (occurrence: None)
  Receive Date: 20080918
  Receipt Date: 20080910
  Transmission Date: 20090109
  Serious: Yes (Hospitalization)
  Sender: FDA-Public Use
  Company Number: 2008SP002155

PATIENT
  Age: 80 Year
  Sex: Female

DRUGS (9)
  1. BROVANA A(15 UG/2ML) [Suspect]
     Indication: ASTHMA
     Dosage: 15 UG/2ML; BID; INHALATION
     Route: 055
     Dates: start: 20080806, end: 20080801
  2. SYNTHROID (CON.) [Concomitant]
  3. LASIX /00032601/ (CON.) [Concomitant]
  4. ECOTRIN (CON.) [Concomitant]
  5. FOLIC ACID (CON.) [Concomitant]
  6. VITAMIN C (CON.) [Concomitant]
  7. VITAMIN D NOS (CON.) [Concomitant]
  8. XANAX (CON.) [Concomitant]
  9. ADVAIR (PREV.) [Concomitant]

REACTIONS (9)
  - ASTHMA [None]
  - BLOOD CHOLESTEROL INCREASED [None]
  - BLOOD THYROID STIMULATING HORMONE DECREASED [None]
  - CONDITION AGGRAVATED [None]
  - DYSPNOEA [None]
  - HYPOTHYROIDISM [None]
  - PALPITATIONS [None]
  - TACHYCARDIA [None]
  - WHEEZING [None]
